FAERS Safety Report 5407778-9 (Version None)
Quarter: 2007Q3

REPORT INFORMATION
  Report Type: 
  Country: None (occurrence: None)
  Receive Date: 20070807
  Receipt Date: 20070723
  Transmission Date: 20080115
  Serious: Yes (Other)
  Sender: FDA-Public Use
  Company Number: US-SHR-US-2006-016049

PATIENT
  Age: 55 Year
  Sex: Female
  Weight: 72.6 kg

DRUGS (8)
  1. BETASERON [Suspect]
     Indication: SECONDARY PROGRESSIVE MULTIPLE SCLEROSIS
     Dosage: 8 MIU, EVERY 2D
     Route: 058
     Dates: start: 20060101, end: 20060601
  2. DIOVAN [Concomitant]
     Dosage: 60 MG, UNK
     Route: 048
  3. LIPITOR [Concomitant]
     Dosage: 20 MG, UNK
     Route: 048
  4. VALIUM [Concomitant]
     Dosage: 5 MG, 3X/DAY
     Route: 048
  5. ZANAFLEX [Concomitant]
     Dosage: 16 MG, UNK
     Route: 048
  6. BACLOFEN [Concomitant]
     Dosage: 80 MG, UNK
     Route: 048
  7. TIZANIDINE HCL [Concomitant]
  8. DIAZEPAM [Concomitant]

REACTIONS (9)
  - ASTHENIA [None]
  - CONTUSION [None]
  - DYSPNOEA [None]
  - FAECALOMA [None]
  - FALL [None]
  - INFECTION [None]
  - MOBILITY DECREASED [None]
  - MULTIPLE SCLEROSIS [None]
  - RIB FRACTURE [None]
